FAERS Safety Report 23382378 (Version 2)
Quarter: 2024Q1

REPORT INFORMATION
  Report Type: Spontaneous
  Country: HU (occurrence: None)
  Receive Date: 20240109
  Receipt Date: 20240112
  Transmission Date: 20240410
  Serious: Yes (Life-Threatening, Hospitalization, Other)
  Sender: FDA-Public Use
  Company Number: 2024A003614

PATIENT
  Age: 24001 Day
  Sex: Female
  Weight: 64 kg

DRUGS (10)
  1. SAPHNELO [Suspect]
     Active Substance: ANIFROLUMAB-FNIA
     Indication: Systemic lupus erythematosus
     Route: 041
     Dates: start: 20240104, end: 20240104
  2. METHOTREXATE SODIUM [Concomitant]
     Active Substance: METHOTREXATE SODIUM
     Indication: Systemic lupus erythematosus
     Dosage: 1XWEEKLY 20 MG
     Route: 048
  3. C. KALDYUM [Concomitant]
     Indication: Systemic lupus erythematosus
     Dosage: 600MG 1X1;
     Route: 048
  4. T. PLAQUENIL [Concomitant]
     Indication: Systemic lupus erythematosus
     Dosage: 1X200MG 1X1;
     Route: 048
  5. T. MEDROL [Concomitant]
     Indication: Systemic lupus erythematosus
     Dosage: 4MG1-3 TABLET/DAY
     Route: 048
  6. T. XARELTO [Concomitant]
     Indication: Antiphospholipid syndrome
     Dosage: 20 MG
     Route: 048
  7. T. STAYVEER [Concomitant]
     Indication: Systemic lupus erythematosus
     Dosage: 1X125MG
     Route: 048
  8. RABEMAN [Concomitant]
     Indication: Gastrooesophageal reflux disease
     Dosage: 1X20 MG
  9. C+ D3 VITAMIN [Concomitant]
     Dosage: 1X125MG
     Route: 048
  10. ACIDOGIT [Concomitant]

REACTIONS (5)
  - Blood pressure decreased [Recovering/Resolving]
  - Hypoaesthesia oral [Recovering/Resolving]
  - Skin disorder [Recovering/Resolving]
  - Pruritus [Recovering/Resolving]
  - Anaphylactic reaction [Recovered/Resolved]

NARRATIVE: CASE EVENT DATE: 20240104
